FAERS Safety Report 4839021-3 (Version None)
Quarter: 2005Q4

REPORT INFORMATION
  Report Type: 
  Country: None (occurrence: None)
  Receive Date: 20051031
  Receipt Date: 20050817
  Transmission Date: 20060501
  Serious: Yes (Other)
  Sender: FDA-Public Use
  Company Number: 200516265US

PATIENT
  Age: 58 Year
  Sex: Male

DRUGS (4)
  1. KETEK [Suspect]
     Indication: ASTHENIA
     Dosage: 800 MG QD PO
     Route: 048
     Dates: start: 20050712, end: 20050712
  2. KETEK [Suspect]
     Indication: UPPER RESPIRATORY TRACT CONGESTION
     Dosage: 800 MG QD PO
     Route: 048
     Dates: start: 20050712, end: 20050712
  3. SYNTHROID [Concomitant]
  4. MESTINON [Concomitant]

REACTIONS (3)
  - ASTHENIA [None]
  - DYSPNOEA [None]
  - MYASTHENIA GRAVIS [None]
